FAERS Safety Report 23878657 (Version 1)
Quarter: 2024Q2

REPORT INFORMATION
  Report Type: Spontaneous
  Country: US (occurrence: None)
  Receive Date: 20240520
  Receipt Date: 20240520
  Transmission Date: 20240716
  Serious: Yes (Other)
  Sender: FDA-Public Use
  Company Number: None

PATIENT
  Age: 63 Year
  Sex: Female
  Weight: 87.75 kg

DRUGS (1)
  1. OZEMPIC [Suspect]
     Active Substance: SEMAGLUTIDE
     Indication: Diabetes mellitus
     Dosage: FREQUENCY : WEEKLY;?
     Route: 058
     Dates: start: 20240410, end: 20240519

REACTIONS (8)
  - Memory impairment [None]
  - Brain fog [None]
  - Confusional state [None]
  - Anxiety [None]
  - Depression [None]
  - Asthenia [None]
  - Feeling jittery [None]
  - Heart rate increased [None]
